FAERS Safety Report 4893611-0 (Version None)
Quarter: 2006Q1

REPORT INFORMATION
  Report Type: 
  Country: None (occurrence: None)
  Receive Date: 20060127
  Receipt Date: 20051212
  Transmission Date: 20060701
  Serious: Yes (Hospitalization)
  Sender: FDA-Public Use
  Company Number: US-SP-2005-02778

PATIENT
  Age: 75 Year
  Sex: Male

DRUGS (4)
  1. THERACYS [Suspect]
     Indication: BLADDER CANCER
     Route: 043
     Dates: start: 20051212
  2. THERACYS [Suspect]
     Route: 043
     Dates: start: 20051212
  3. INTERFERON [Concomitant]
  4. TYLENOL (CAPLET) [Concomitant]

REACTIONS (3)
  - DYSURIA [None]
  - PYREXIA [None]
  - TREMOR [None]
